FAERS Safety Report 8828727 (Version 2)
Quarter: 2014Q3

REPORT INFORMATION
  Report Type: Report from Study
  Country: US (occurrence: US)
  Receive Date: 20121008
  Receipt Date: 20140904
  Transmission Date: 20150326
  Serious: Yes (Other)
  Sender: FDA-Public Use
  Company Number: US-ROCHE-1134222

PATIENT
  Sex: Female
  Weight: 69.92 kg

DRUGS (2)
  1. RITUXAN [Suspect]
     Active Substance: RITUXIMAB
     Indication: OFF LABEL USE
     Route: 042
     Dates: start: 20011115
  2. RITUXAN [Suspect]
     Active Substance: RITUXIMAB
     Indication: NON-HODGKIN^S LYMPHOMA

REACTIONS (7)
  - Peripheral coldness [Unknown]
  - Pruritus [Unknown]
  - Splenomegaly [Unknown]
  - Non-Hodgkin^s lymphoma [Unknown]
  - Night sweats [Unknown]
  - Skin discolouration [Unknown]
  - Off label use [Unknown]
